FAERS Safety Report 5652422-9 (Version None)
Quarter: 2008Q1

REPORT INFORMATION
  Report Type: 
  Country: None (occurrence: None)
  Receive Date: 20080306
  Receipt Date: 20080221
  Transmission Date: 20080703
  Serious: Yes (Other)
  Sender: FDA-Public Use
  Company Number: US-BAYER-200811022NA

PATIENT
  Age: 28 Year
  Sex: Female
  Weight: 66 kg

DRUGS (3)
  1. MIRENA [Suspect]
     Indication: CONTRACEPTION
     Route: 015
     Dates: start: 20070807, end: 20080110
  2. LORTAB [Concomitant]
     Indication: PAIN
     Route: 048
  3. PHENERGAN HCL [Concomitant]
     Indication: NAUSEA
     Route: 048

REACTIONS (4)
  - PYELONEPHRITIS [None]
  - URETERIC STENOSIS [None]
  - URINARY TRACT INFECTION [None]
  - URINE ODOUR ABNORMAL [None]
